FAERS Safety Report 17335729 (Version 1)
Quarter: 2020Q1

REPORT INFORMATION
  Report Type: Spontaneous
  Country: US (occurrence: US)
  Receive Date: 20200128
  Receipt Date: 20200128
  Transmission Date: 20200409
  Serious: Yes (Death, Hospitalization)
  Sender: FDA-Public Use
  Company Number: US-JNJFOC-20200134410

PATIENT
  Age: 25 Year
  Sex: Male

DRUGS (2)
  1. ETHYLENE GLYCOL [Suspect]
     Active Substance: ETHYLENE GLYCOL
     Indication: SUICIDE ATTEMPT
     Route: 048
  2. CAMPHOR/MENTHOL/METHYL SALICYLATE [Suspect]
     Active Substance: CAMPHOR\MENTHOL\METHYL SALICYLATE
     Indication: SUICIDE ATTEMPT
     Route: 048

REACTIONS (1)
  - Toxicity to various agents [Fatal]
